FAERS Safety Report 20518477 (Version 1)
Quarter: 2022Q1

REPORT INFORMATION
  Report Type: Spontaneous
  Country: US (occurrence: None)
  Receive Date: 20220224
  Receipt Date: 20220224
  Transmission Date: 20220423
  Serious: Yes (Death)
  Sender: FDA-Public Use
  Company Number: None

PATIENT
  Sex: Male
  Weight: 271.17 kg

DRUGS (16)
  1. SPRYCEL [Suspect]
     Active Substance: DASATINIB
     Indication: Chronic myeloid leukaemia
     Dosage: FREQUENCY : DAILY;?
     Route: 048
     Dates: start: 20161005
  2. ALLOPURINOL [Concomitant]
     Active Substance: ALLOPURINOL
  3. NEURONTIN [Concomitant]
     Active Substance: GABAPENTIN
  4. NAPROXEN [Concomitant]
     Active Substance: NAPROXEN
  5. BISACODYL [Concomitant]
     Active Substance: BISACODYL
  6. NORVASC [Concomitant]
     Active Substance: AMLODIPINE BESYLATE
  7. ASPIRIN [Concomitant]
     Active Substance: ASPIRIN
  8. HYDREA [Concomitant]
     Active Substance: HYDROXYUREA
  9. HYDROCORTISONE [Concomitant]
     Active Substance: HYDROCORTISONE
  10. GERI-LANTA [Concomitant]
  11. TRAMADOL HCL [Concomitant]
     Active Substance: TRAMADOL HYDROCHLORIDE
  12. CYCLOBENZAPRINE HYDROCHLORIDE [Concomitant]
     Active Substance: CYCLOBENZAPRINE HYDROCHLORIDE
  13. PEG 3350 [Concomitant]
     Active Substance: POLYETHYLENE GLYCOL 3350
  14. LASIX [Concomitant]
     Active Substance: FUROSEMIDE
  15. GABAPENTIN [Concomitant]
     Active Substance: GABAPENTIN
  16. POLYETHYLENE GLYCOL 1450 [Concomitant]

REACTIONS (2)
  - Hypoxia [None]
  - Myocardial infarction [None]
